FAERS Safety Report 17711711 (Version 1)
Quarter: 2020Q2

REPORT INFORMATION
  Report Type: Spontaneous
  Country: US (occurrence: US)
  Receive Date: 20200425
  Receipt Date: 20200425
  Transmission Date: 20200714
  Serious: No
  Sender: FDA-Public Use
  Company Number: None

PATIENT
  Age: 70 Year
  Sex: Male
  Weight: 74.25 kg

DRUGS (4)
  1. ATORVASTATIN [Suspect]
     Active Substance: ATORVASTATIN
     Indication: CARDIAC DISORDER
     Dosage: ?          QUANTITY:1 TABLET(S);?
     Route: 048
     Dates: start: 20200424, end: 20200425
  2. VITAMIN D [Concomitant]
     Active Substance: VITAMIN D NOS
  3. BUPROPION. [Concomitant]
     Active Substance: BUPROPION
  4. LOSARTAN. [Concomitant]
     Active Substance: LOSARTAN

REACTIONS (2)
  - Abdominal pain lower [None]
  - Therapy cessation [None]

NARRATIVE: CASE EVENT DATE: 20200425
